FAERS Safety Report 5938342-0 (Version None)
Quarter: 2008Q4

REPORT INFORMATION
  Report Type: 
  Country: None (occurrence: None)
  Receive Date: 20081103
  Receipt Date: 20081030
  Transmission Date: 20090506
  Serious: Yes (Death)
  Sender: FDA-Public Use
  Company Number: JP-JNJFOC-20081001670

PATIENT
  Age: 76 Year
  Sex: Male

DRUGS (2)
  1. FENTANYL CITRATE [Suspect]
     Indication: DRUG USE FOR UNKNOWN INDICATION
     Dosage: TWO PATCHES OF FENTANYL TTS 25MCG
     Route: 062
  2. HYPEN [Concomitant]
     Route: 048

REACTIONS (3)
  - DRUG EFFECT DECREASED [None]
  - MALIGNANT NEOPLASM PROGRESSION [None]
  - SOMNOLENCE [None]
